FAERS Safety Report 16724278 (Version 1)
Quarter: 2019Q3

REPORT INFORMATION
  Report Type: Spontaneous
  Country: US (occurrence: US)
  Receive Date: 20190703
  Receipt Date: 20190703
  Transmission Date: 20191005
  Serious: No
  Sender: FDA-Public Use
  Company Number: None

PATIENT
  Sex: Female

DRUGS (1)
  1. FONDAPARINUX SYR (0.8ML) 10MG/0.8ML [Suspect]
     Active Substance: FONDAPARINUX
     Indication: HYPERCOAGULATION
     Route: 058
     Dates: start: 20190419

REACTIONS (3)
  - Amnesia [None]
  - Cerebrovascular accident [None]
  - Seizure [None]
